FAERS Safety Report 9420336 (Version 1)
Quarter: 2013Q3

REPORT INFORMATION
  Report Type: Spontaneous
  Country: US (occurrence: US)
  Receive Date: 20130725
  Receipt Date: 20130725
  Transmission Date: 20140515
  Serious: No
  Sender: FDA-Public Use
  Company Number: US-ABBOTT-13P-163-1047958-00

PATIENT
  Sex: Female
  Weight: 113.5 kg

DRUGS (1)
  1. SYNTHROID [Suspect]
     Indication: BLOOD THYROID STIMULATING HORMONE DECREASED

REACTIONS (1)
  - Gastrointestinal pain [Unknown]
